FAERS Safety Report 14243336 (Version 1)
Quarter: 2020Q3

REPORT INFORMATION
  Report Type: Report from Study
  Country: PL (occurrence: PL)
  Receive Date: 20171201
  Receipt Date: 20171201
  Transmission Date: 20201104
  Serious: Yes (Death, Life-Threatening, Other)
  Sender: FDA-Public Use
  Company Number: PL-ASTRAZENECA-2016SF36840

PATIENT
  Age: 24196 Day
  Sex: Female

DRUGS (11)
  1. TREMELIMUMAB. [Suspect]
     Active Substance: TREMELIMUMAB
     Indication: SQUAMOUS CELL CARCINOMA OF HEAD AND NECK
     Route: 042
     Dates: start: 20161012, end: 20161012
  2. FENOTEROL/IPRATROPIUM [Concomitant]
     Indication: COUGH
     Dosage: 10 GTT AS NEEDED
     Route: 055
     Dates: start: 20161110
  3. MEDI4736 [Suspect]
     Active Substance: DURVALUMAB
     Indication: SQUAMOUS CELL CARCINOMA OF HEAD AND NECK
     Route: 042
     Dates: start: 20161207, end: 20161207
  4. ATORVASTATIN [Concomitant]
     Active Substance: ATORVASTATIN
     Indication: HYPERCHOLESTEROLAEMIA
     Dosage: 20.00 MG QD
     Route: 048
     Dates: start: 20140301
  5. MEDI4736 [Suspect]
     Active Substance: DURVALUMAB
     Indication: SQUAMOUS CELL CARCINOMA OF HEAD AND NECK
     Route: 042
     Dates: start: 20161012, end: 20161012
  6. MEDI4736 [Suspect]
     Active Substance: DURVALUMAB
     Indication: SQUAMOUS CELL CARCINOMA OF HEAD AND NECK
     Route: 042
     Dates: start: 20161110, end: 20161110
  7. TREMELIMUMAB. [Suspect]
     Active Substance: TREMELIMUMAB
     Indication: SQUAMOUS CELL CARCINOMA OF HEAD AND NECK
     Route: 042
     Dates: start: 20161207, end: 20161207
  8. TREMELIMUMAB. [Suspect]
     Active Substance: TREMELIMUMAB
     Indication: SQUAMOUS CELL CARCINOMA OF HEAD AND NECK
     Route: 042
     Dates: start: 20161110, end: 20161110
  9. RAMIPRIL. [Concomitant]
     Active Substance: RAMIPRIL
     Indication: HYPERTENSION
     Dosage: 5.00 MG QD
     Route: 048
     Dates: start: 20140301
  10. FENOTEROL/IPRATROPIUM [Concomitant]
     Indication: DYSPNOEA
     Dosage: 10 GTT AS NEEDED
     Route: 055
     Dates: start: 20161110
  11. MORPHINE [Concomitant]
     Active Substance: MORPHINE
     Indication: TUMOUR PAIN
     Dosage: 20.00 MG BID
     Route: 048
     Dates: start: 20160302

REACTIONS (1)
  - Tumour haemorrhage [Fatal]

NARRATIVE: CASE EVENT DATE: 20161209
